FAERS Safety Report 26095816 (Version 2)
Quarter: 2025Q4

REPORT INFORMATION
  Report Type: Report from Study
  Country: US (occurrence: US)
  Receive Date: 20251127
  Receipt Date: 20251128
  Transmission Date: 20260117
  Serious: No
  Sender: SANDOZ
  Company Number: US-002147023-NVSC2023US034133

PATIENT
  Age: 10 Year
  Sex: Male

DRUGS (4)
  1. OMNITROPE [Suspect]
     Active Substance: SOMATROPIN
     Indication: Short stature
     Dosage: 1.4 MG, QD
     Route: 058
     Dates: start: 20230124
  2. OMNITROPE [Suspect]
     Active Substance: SOMATROPIN
     Indication: Short stature
     Dosage: 1.4 MG, QD
     Route: 058
     Dates: start: 20230124
  3. OMNITROPE [Suspect]
     Active Substance: SOMATROPIN
     Dosage: 2.5 MG, OTHER
     Route: 058
  4. OMNITROPE [Suspect]
     Active Substance: SOMATROPIN
     Dosage: 2.5 MG, OTHER
     Route: 058

REACTIONS (4)
  - Injection site bruising [Not Recovered/Not Resolved]
  - Injection site haemorrhage [Not Recovered/Not Resolved]
  - Product storage error [Unknown]
  - Drug dose omission by device [Unknown]

NARRATIVE: CASE EVENT DATE: 20230124
